FAERS Safety Report 17850329 (Version 1)
Quarter: 2020Q2

REPORT INFORMATION
  Report Type: Spontaneous
  Country: US (occurrence: US)
  Receive Date: 20200602
  Receipt Date: 20200602
  Transmission Date: 20200714
  Serious: No
  Sender: FDA-Public Use
  Company Number: NVSC2020US151120

PATIENT
  Sex: Female
  Weight: 61.23 kg

DRUGS (2)
  1. DESFERAL [Suspect]
     Active Substance: DEFEROXAMINE MESYLATE
     Indication: BLOOD IRON ABNORMAL
     Dosage: 1 G, QD (SUBCUTANEOUS FOR 12 HRS)
     Route: 058
  2. DESFERAL [Suspect]
     Active Substance: DEFEROXAMINE MESYLATE
     Indication: HAEMOCHROMATOSIS

REACTIONS (3)
  - Malaise [Unknown]
  - Fungal infection [Unknown]
  - Hypersensitivity [Unknown]
